FAERS Safety Report 8552827-2 (Version None)
Quarter: 2012Q3

REPORT INFORMATION
  Report Type: 
  Country: None (occurrence: None)
  Receive Date: 20120731
  Receipt Date: 20120726
  Transmission Date: 20120928
  Serious: Yes (Death, Other)
  Sender: FDA-Public Use
  Company Number: PHHY2012NL041821

PATIENT
  Sex: Female
  Weight: 50 kg

DRUGS (8)
  1. FEMARA [Concomitant]
     Dosage: UNK UKN, UNK
     Route: 065
     Dates: start: 20110201
  2. CALCIUM [Concomitant]
     Dosage: UNK UKN, UNK
     Route: 065
  3. ACETAMINOPHEN [Concomitant]
     Dosage: UNK UKN, UNK
     Route: 065
     Dates: start: 20120410
  4. FRAXODI [Concomitant]
     Dosage: 0.6 CC X1
     Route: 058
  5. ZOMETA [Suspect]
     Dosage: 4 MG/100ML, 1X PER 182 DAYS
     Dates: end: 20111114
  6. DENOSUMAB [Concomitant]
     Dosage: UNK UKN, UNK
     Route: 058
  7. ZOMETA [Suspect]
     Indication: BREAST CANCER METASTATIC
     Dosage: 4 MG/100ML, 1X PER 182 DAYS
     Dates: start: 20110523
  8. COLECALCIFEROL [Concomitant]
     Dosage: UNK UKN, UNK
     Route: 065

REACTIONS (17)
  - OVARIAN CYST [None]
  - MUSCULOSKELETAL PAIN [None]
  - NEOPLASM MALIGNANT [None]
  - VENA CAVA THROMBOSIS [None]
  - SWELLING [None]
  - DEATH [None]
  - ANGIOPATHY [None]
  - WEIGHT DECREASED [None]
  - FATIGUE [None]
  - HYPERCALCAEMIA [None]
  - ARTERIOSCLEROSIS [None]
  - DRUG ADMINISTRATION ERROR [None]
  - PULMONARY FUNCTION TEST ABNORMAL [None]
  - JUGULAR VEIN THROMBOSIS [None]
  - EMPHYSEMA [None]
  - LUNG NEOPLASM MALIGNANT [None]
  - METASTASES TO LYMPH NODES [None]
